FAERS Safety Report 6158586-5 (Version None)
Quarter: 2009Q2

REPORT INFORMATION
  Report Type: 
  Country: None (occurrence: None)
  Receive Date: 20090417
  Receipt Date: 20090413
  Transmission Date: 20091009
  Serious: Yes (Death)
  Sender: FDA-Public Use
  Company Number: EG-AVENTIS-200913786GDDC

PATIENT
  Sex: Male

DRUGS (1)
  1. LANTUS [Suspect]
     Route: 058
     Dates: start: 20081230, end: 20090122

REACTIONS (1)
  - DEATH [None]
